FAERS Safety Report 4420009-1 (Version None)
Quarter: 2004Q3

REPORT INFORMATION
  Report Type: 
  Country: None (occurrence: None)
  Receive Date: 20040804
  Receipt Date: 20040727
  Transmission Date: 20050211
  Serious: Yes (Other)
  Sender: FDA-Public Use
  Company Number: 2004US000835

PATIENT
  Age: 52 Year
  Sex: Female

DRUGS (9)
  1. AMBISOME [Suspect]
     Dosage: 300.00 MG, UID/QD, INTRAVNEOUS
     Route: 042
     Dates: start: 20040530, end: 20040602
  2. RANITIDINE [Concomitant]
  3. COMBIVENT [Concomitant]
  4. SOLIVITO N (AMINOAETIC ACID, VITAMINS NOS, PANTOTHENATE SODIUM, NICOTI [Concomitant]
  5. CLINDAMYCIN [Concomitant]
  6. ZOVIRAX [Concomitant]
  7. FENTANYL CITRATE [Concomitant]
  8. HEPARIN [Concomitant]
  9. FOLIC ACID [Concomitant]

REACTIONS (1)
  - TOXIC EPIDERMAL NECROLYSIS [None]
